FAERS Safety Report 24962445 (Version 1)
Quarter: 2025Q1

REPORT INFORMATION
  Report Type: Spontaneous
  Country: US (occurrence: US)
  Receive Date: 20250212
  Receipt Date: 20250212
  Transmission Date: 20250408
  Serious: Yes (Other)
  Sender: JOHNSON AND JOHNSON
  Company Number: US-JNJFOC-20250206803

PATIENT

DRUGS (2)
  1. TECVAYLI [Suspect]
     Active Substance: TECLISTAMAB-CQYV
     Indication: Plasma cell myeloma
     Route: 058
     Dates: start: 20250203
  2. TOCILIZUMAB [Concomitant]
     Active Substance: TOCILIZUMAB

REACTIONS (3)
  - Cytokine release syndrome [Recovered/Resolved]
  - Ataxia [Recovered/Resolved]
  - Visual field defect [Recovered/Resolved]

NARRATIVE: CASE EVENT DATE: 20250204
